FAERS Safety Report 13303926 (Version 1)
Quarter: 2017Q1

REPORT INFORMATION
  Report Type: Spontaneous
  Country: FR (occurrence: FR)
  Receive Date: 20170307
  Receipt Date: 20170307
  Transmission Date: 20170428
  Serious: Yes (Hospitalization)
  Sender: FDA-Public Use
  Company Number: PHHY2017FR033126

PATIENT
  Age: 54 Year
  Sex: Female

DRUGS (16)
  1. AUGMENTIN [Suspect]
     Active Substance: AMOXICILLIN\CLAVULANATE POTASSIUM
     Indication: BACTERAEMIA
     Dosage: 1 DF, TID
     Route: 042
     Dates: start: 20170131
  2. TRAMADOL HYDROCHLORIDE. [Suspect]
     Active Substance: TRAMADOL HYDROCHLORIDE
     Indication: PAIN
     Dosage: 200 MG, QD
     Route: 048
  3. VENLAFAXINE HYDROCHLORIDE. [Suspect]
     Active Substance: VENLAFAXINE HYDROCHLORIDE
     Indication: MAJOR DEPRESSION
     Dosage: 37.5 MG, QD (MORNING)
     Route: 065
  4. VENLAFAXINE HYDROCHLORIDE. [Suspect]
     Active Substance: VENLAFAXINE HYDROCHLORIDE
     Dosage: 75 MG, QD (EVENING)
     Route: 048
  5. CUBICIN [Suspect]
     Active Substance: DAPTOMYCIN
     Indication: BACTERAEMIA
     Dosage: 1 DF, QD
     Route: 042
     Dates: start: 20170131
  6. PANTOPRAZOLE [Suspect]
     Active Substance: PANTOPRAZOLE SODIUM
     Indication: GASTROOESOPHAGEAL REFLUX DISEASE
     Dosage: 40 MG, QD
     Route: 048
  7. CEFTOBIPROLE MEDOCARIL [Suspect]
     Active Substance: CEFTOBIPROLE MEDOCARIL
     Indication: BACTERAEMIA
     Dosage: 1 DF, Q8H
     Route: 042
     Dates: start: 20170127, end: 20170130
  8. STILNOX [Suspect]
     Active Substance: ZOLPIDEM TARTRATE
     Indication: INSOMNIA
     Dosage: 10 MG, QD
     Route: 048
  9. LOVENOX [Suspect]
     Active Substance: ENOXAPARIN SODIUM
     Indication: THROMBOSIS PROPHYLAXIS
     Dosage: UNK (0.4 ML/24 HOURS, STRENGTH 4000 IU ANTI-XA/0.4 ML)
     Route: 058
  10. AMIKACINE [Suspect]
     Active Substance: AMIKACIN
     Indication: BACTERAEMIA
     Dosage: 15 MG/KG, UNK
     Route: 042
     Dates: start: 20170127, end: 20170130
  11. ACETAMINOPHEN. [Suspect]
     Active Substance: ACETAMINOPHEN
     Indication: PAIN
     Dosage: 1 G, PRN
     Route: 048
  12. CERNEVIT [Concomitant]
     Active Substance: VITAMINS
     Indication: PRODUCT USED FOR UNKNOWN INDICATION
     Route: 065
  13. OXYNORM [Suspect]
     Active Substance: OXYCODONE HYDROCHLORIDE
     Indication: PAIN
     Dosage: UNK
     Route: 048
     Dates: start: 20170127
  14. OLIMEL [Concomitant]
     Active Substance: AMINO ACIDS\DEXTROSE\SOYBEAN OIL
     Indication: PRODUCT USED FOR UNKNOWN INDICATION
     Route: 005
  15. ACUPAN [Suspect]
     Active Substance: NEFOPAM HYDROCHLORIDE
     Indication: PAIN
     Dosage: UNK
     Route: 042
     Dates: start: 20170127
  16. PHOCYTAN [Concomitant]
     Active Substance: .ALPHA.-GLUCOSE-1-PHOSPHATE
     Indication: PRODUCT USED FOR UNKNOWN INDICATION
     Route: 065

REACTIONS (1)
  - Leukopenia [Unknown]

NARRATIVE: CASE EVENT DATE: 20170214
